FAERS Safety Report 4645816-1 (Version None)
Quarter: 2005Q2

REPORT INFORMATION
  Report Type: 
  Country: None (occurrence: None)
  Receive Date: 20050425
  Receipt Date: 20050412
  Transmission Date: 20051028
  Serious: Yes (Other)
  Sender: FDA-Public Use
  Company Number: MED000080

PATIENT
  Age: 67 Year
  Sex: Female

DRUGS (7)
  1. LACTATED RINGER'S [Suspect]
     Indication: PREOPERATIVE CARE
     Dosage: INTRAVENOUS
     Route: 042
     Dates: start: 20050412
  2. PREDNISONE TAB [Concomitant]
  3. PREVACID [Concomitant]
  4. PRAVACHOL [Concomitant]
  5. ATENOLOL [Concomitant]
  6. XANAX [Concomitant]
  7. ALEVE [Concomitant]

REACTIONS (3)
  - INFUSION RELATED REACTION [None]
  - PRURITUS [None]
  - URTICARIA [None]
